FAERS Safety Report 4273590-X (Version None)
Quarter: 2004Q1

REPORT INFORMATION
  Report Type: 
  Country: None (occurrence: None)
  Receive Date: 20040116
  Receipt Date: 20040116
  Transmission Date: 20041129
  Serious: Yes (Life-Threatening, Hospitalization)
  Sender: FDA-Public Use
  Company Number: None

PATIENT
  Age: 68 Year
  Sex: Male
  Weight: 99.8 kg

DRUGS (1)
  1. ZOSYN [Suspect]
     Indication: LITHOTRIPSY
     Dosage: IV PIGGY
     Route: 042
     Dates: start: 20031029, end: 20031029

REACTIONS (5)
  - ANAPHYLACTIC REACTION [None]
  - ANXIETY [None]
  - CARDIAC ARREST [None]
  - FLUSHING [None]
  - HYPOTENSION [None]
